FAERS Safety Report 12605690 (Version 3)
Quarter: 2016Q4

REPORT INFORMATION
  Report Type: Spontaneous
  Country: GB (occurrence: GB)
  Receive Date: 20160729
  Receipt Date: 20161116
  Transmission Date: 20170207
  Serious: Yes (Other)
  Sender: FDA-Public Use
  Company Number: GB-ACCORD-042741

PATIENT
  Age: 63 Year
  Sex: Male

DRUGS (6)
  1. LANSOPRAZOLE. [Concomitant]
     Active Substance: LANSOPRAZOLE
  2. PRAVASTATIN. [Concomitant]
     Active Substance: PRAVASTATIN
  3. SALBUTAMOL [Concomitant]
     Active Substance: ALBUTEROL
  4. BISOPROLOL [Concomitant]
     Active Substance: BISOPROLOL
  5. GLYCOPYRRONIUM/GLYCOPYRRONIUM BROMIDE [Concomitant]
  6. LISINOPRIL. [Suspect]
     Active Substance: LISINOPRIL
     Indication: CARDIOVASCULAR DISORDER
     Route: 048

REACTIONS (6)
  - Haematemesis [Recovering/Resolving]
  - Haemoptysis [Recovering/Resolving]
  - Pruritus [Unknown]
  - Haemorrhage [Unknown]
  - Sensory disturbance [Unknown]
  - Dizziness [Unknown]

NARRATIVE: CASE EVENT DATE: 20160708
